FAERS Safety Report 9257810 (Version 1)
Quarter: 2013Q1

REPORT INFORMATION
  Report Type: Spontaneous
  Country: US (occurrence: None)
  Receive Date: 20121212
  Receipt Date: 20121212
  Transmission Date: 20140127
  Serious: No
  Sender: FDA-Public Use
  Company Number: 1209USA000032

PATIENT
  Age: 45 Year
  Sex: Female

DRUGS (3)
  1. REBETOL (RIBAVIRIN) [Suspect]
     Indication: HEPATITIS C
     Dates: start: 20120501
  2. VICTRELIS [Suspect]
     Indication: HEPATITIS C
  3. PEGASYS [Suspect]

REACTIONS (6)
  - Nasal ulcer [None]
  - Drug ineffective [None]
  - Pruritus [None]
  - Anaemia [None]
  - Vitamin D decreased [None]
  - Vomiting [None]
